FAERS Safety Report 14753266 (Version 1)
Quarter: 2018Q2

REPORT INFORMATION
  Report Type: Spontaneous
  Country: US (occurrence: US)
  Receive Date: 20180412
  Receipt Date: 20180412
  Transmission Date: 20180711
  Serious: No
  Sender: FDA-Public Use
  Company Number: US-PFIZER INC-2018141923

PATIENT
  Age: 59 Year
  Sex: Female

DRUGS (2)
  1. XELJANZ [Suspect]
     Active Substance: TOFACITINIB CITRATE
     Dosage: 5 MG, DAILY (5MG/DAILY ^M,W,F.^ ) (5 MG QOD)
  2. PREDNISONE. [Suspect]
     Active Substance: PREDNISONE
     Dosage: UNK

REACTIONS (6)
  - Product use issue [Unknown]
  - Arthralgia [Unknown]
  - Chills [Unknown]
  - Weight increased [Unknown]
  - Neck pain [Unknown]
  - Rash generalised [Unknown]
